FAERS Safety Report 25679427 (Version 1)
Quarter: 2025Q3

REPORT INFORMATION
  Report Type: Spontaneous
  Country: CN (occurrence: CN)
  Receive Date: 20250814
  Receipt Date: 20250814
  Transmission Date: 20251020
  Serious: Yes (Hospitalization)
  Sender: NOVAST LABORATORIES LTD
  Company Number: CN-NOVAST LABORATORIES INC.-2025NOV000259

PATIENT
  Age: 58 Year
  Sex: Female

DRUGS (1)
  1. ZOLEDRONIC ACID [Suspect]
     Active Substance: ZOLEDRONIC ACID
     Indication: Osteoporosis
     Route: 042

REACTIONS (2)
  - Mental disorder [Recovered/Resolved]
  - Product use in unapproved indication [Unknown]
